FAERS Safety Report 21837132 (Version 5)
Quarter: 2023Q1

REPORT INFORMATION
  Report Type: Report from Study
  Country: AU (occurrence: AU)
  Receive Date: 20230109
  Receipt Date: 20230223
  Transmission Date: 20230418
  Serious: Yes (Hospitalization, Other)
  Sender: FDA-Public Use
  Company Number: AU-ABBVIE-4165132

PATIENT
  Age: 84 Year
  Sex: Male

DRUGS (2)
  1. CARBIDOPA\LEVODOPA [Suspect]
     Active Substance: CARBIDOPA\LEVODOPA
     Indication: Parkinson^s disease
     Dosage: DUODOPA 100ML GEL CASSETTE
     Route: 050
     Dates: start: 20160711
  2. CARBIDOPA\LEVODOPA [Suspect]
     Active Substance: CARBIDOPA\LEVODOPA

REACTIONS (10)
  - Embedded device [Unknown]
  - Culture wound positive [Unknown]
  - Hospitalisation [Recovering/Resolving]
  - Stoma site discharge [Not Recovered/Not Resolved]
  - Erythema [Not Recovered/Not Resolved]
  - Pain [Unknown]
  - Wound complication [Unknown]
  - Device occlusion [Unknown]
  - Escherichia infection [Unknown]
  - Stoma site pain [Unknown]

NARRATIVE: CASE EVENT DATE: 20230206
